FAERS Safety Report 17660503 (Version 1)
Quarter: 2020Q2

REPORT INFORMATION
  Report Type: Spontaneous
  Country: US (occurrence: US)
  Receive Date: 20200410
  Receipt Date: 20200410
  Transmission Date: 20200713
  Serious: Yes (Life-Threatening)
  Sender: FDA-Public Use
  Company Number: None

PATIENT
  Age: 54 Year
  Sex: Female
  Weight: 130 kg

DRUGS (2)
  1. DOFETILIDE. [Suspect]
     Active Substance: DOFETILIDE
     Indication: ATRIAL FIBRILLATION
     Route: 048
     Dates: start: 20200408, end: 20200409
  2. METOPROLOL 100 MG BID [Concomitant]
     Dates: start: 20200408, end: 20200409

REACTIONS (2)
  - Ventricular tachycardia [None]
  - Torsade de pointes [None]

NARRATIVE: CASE EVENT DATE: 20200409
